FAERS Safety Report 9292621 (Version 2)
Quarter: 2013Q2

REPORT INFORMATION
  Report Type: Spontaneous
  Country: JP (occurrence: JP)
  Receive Date: 20130516
  Receipt Date: 20130627
  Transmission Date: 20140414
  Serious: Yes (Hospitalization)
  Sender: FDA-Public Use
  Company Number: PHHY2013JP048785

PATIENT
  Age: 78 Year
  Sex: Female

DRUGS (1)
  1. NEORAL [Suspect]
     Indication: APLASIA PURE RED CELL
     Route: 048
     Dates: start: 2006

REACTIONS (1)
  - Cerebral infarction [Recovering/Resolving]
